FAERS Safety Report 16530184 (Version 3)
Quarter: 2025Q2

REPORT INFORMATION
  Report Type: Spontaneous
  Country: US (occurrence: US)
  Receive Date: 20190704
  Receipt Date: 20250408
  Transmission Date: 20250717
  Serious: Yes (Other)
  Sender: EYEPOINT PHARMACEUTICALS
  Company Number: US-EYEPOINT PHARMACEUTICALS, INC.-US-EYP-19-00067

PATIENT

DRUGS (3)
  1. DEXYCU [Suspect]
     Active Substance: DEXAMETHASONE
     Indication: Post procedural inflammation
     Route: 031
  2. DEXYCU [Suspect]
     Active Substance: DEXAMETHASONE
  3. MIOCHOL [Concomitant]
     Active Substance: ACETYLCHOLINE CHLORIDE
     Indication: Product used for unknown indication
     Route: 065

REACTIONS (4)
  - Extraocular muscle disorder [Unknown]
  - Iris disorder [Unknown]
  - Pupillary disorder [Unknown]
  - Device dislocation [Unknown]
